FAERS Safety Report 12820692 (Version 2)
Quarter: 2016Q4

REPORT INFORMATION
  Report Type: Spontaneous
  Country: US (occurrence: US)
  Receive Date: 20161006
  Receipt Date: 20161007
  Transmission Date: 20170207
  Serious: Yes (Other)
  Sender: FDA-Public Use
  Company Number: US-GILEAD-2016-0236766

PATIENT
  Age: 62 Year
  Sex: Male

DRUGS (4)
  1. RANEXA [Suspect]
     Active Substance: RANOLAZINE
     Indication: PRODUCT USED FOR UNKNOWN INDICATION
     Dosage: 500 MG, UNK
     Route: 065
  2. RANEXA [Suspect]
     Active Substance: RANOLAZINE
     Dosage: 500 MG, UNK
     Route: 065
  3. RANEXA [Suspect]
     Active Substance: RANOLAZINE
     Dosage: 750 MG, UNK
     Route: 065
  4. RANEXA [Suspect]
     Active Substance: RANOLAZINE
     Dosage: 1000 MG, UNK
     Route: 065

REACTIONS (9)
  - Throat tightness [Recovered/Resolved]
  - Confusional state [Unknown]
  - Wrong technique in product usage process [Recovered/Resolved]
  - Rash [Unknown]
  - Suicidal ideation [Unknown]
  - Urticaria [Recovered/Resolved]
  - Chest pain [Unknown]
  - Off label use [Recovered/Resolved]
  - Loss of consciousness [Unknown]
